FAERS Safety Report 23879539 (Version 3)
Quarter: 2024Q2

REPORT INFORMATION
  Report Type: Spontaneous
  Country: US (occurrence: US)
  Receive Date: 20240521
  Receipt Date: 20240626
  Transmission Date: 20240716
  Serious: No
  Sender: FDA-Public Use
  Company Number: US-PFIZER INC-202400172390

PATIENT
  Age: 75 Year
  Sex: Female
  Weight: 60.33 kg

DRUGS (11)
  1. NURTEC ODT [Suspect]
     Active Substance: RIMEGEPANT SULFATE
     Indication: Headache
     Dosage: ONCE A DAY EVERY OTHER DAY, NO MORE THAN 18 TABLETS A MONTH
     Route: 060
     Dates: start: 20240510
  2. BACLOFEN [Suspect]
     Active Substance: BACLOFEN
     Indication: Vertigo
     Dosage: UNK
  3. VALIUM [Suspect]
     Active Substance: DIAZEPAM
     Indication: Vertigo
     Dosage: UNK
  4. LOSARTAN [Concomitant]
     Active Substance: LOSARTAN
     Dosage: 100 MILLIGRAMS
  5. METOPROLOL [Concomitant]
     Active Substance: METOPROLOL
     Dosage: 125 MILLIGRAMS
  6. NORTRIPTYLINE [Concomitant]
     Active Substance: NORTRIPTYLINE
     Dosage: 50 MILLIGRAMS
  7. VALIUM [Concomitant]
     Active Substance: DIAZEPAM
     Dosage: ANYWHERE FROM 2 TO 5 MILLIGRAMS
  8. IMODIUM [Concomitant]
     Active Substance: LOPERAMIDE HYDROCHLORIDE
     Dosage: UNK
  9. ATORVASTATIN [Concomitant]
     Active Substance: ATORVASTATIN
     Dosage: 20 MILLIGRAMS
  10. TYLENOL [Concomitant]
     Active Substance: ACETAMINOPHEN
     Indication: Headache
     Dosage: OCCASIONALLY TAKE TYLENOL FOR HEADACHE PAIN
  11. IBUPROFEN [Concomitant]
     Active Substance: IBUPROFEN
     Indication: Headache
     Dosage: OCCASIONALLY TAKE IBUPROFEN FOR HEADACHE PAIN

REACTIONS (2)
  - Drug ineffective for unapproved indication [Unknown]
  - Off label use [Unknown]
